FAERS Safety Report 9440064 (Version 2)
Quarter: 2014Q1

REPORT INFORMATION
  Report Type: Report from Study
  Country: US (occurrence: US)
  Receive Date: 20130805
  Receipt Date: 20140121
  Transmission Date: 20141002
  Serious: Yes (Other)
  Sender: FDA-Public Use
  Company Number: US-ASTELLAS-2013US008154

PATIENT
  Sex: Female

DRUGS (6)
  1. ERLOTINIB TABLET [Suspect]
     Indication: RECTAL CANCER
     Dosage: 50 MG, UID/QD, 25 MG 1 IN 8 HR
     Route: 065
  2. ERLOTINIB TABLET [Suspect]
     Indication: COLON CANCER
     Dosage: 100 MG, UID/QD
     Route: 065
  3. ERLOTINIB TABLET [Suspect]
     Dosage: 150 MG, UNKNOWN/D
     Route: 065
  4. ERLOTINIB TABLET [Suspect]
     Dosage: 175 MG, UID/QD
     Route: 065
     Dates: start: 2008
  5. ERLOTINIB TABLET [Suspect]
     Dosage: 25 MG, 2 IN 1 DAY
     Route: 065
  6. ERLOTINIB TABLET [Suspect]
     Dosage: 25 MG, TID
     Route: 065

REACTIONS (14)
  - Off label use [Unknown]
  - Incorrect product storage [Unknown]
  - Drug dose omission [Unknown]
  - Hypoaesthesia oral [Unknown]
  - Neuropathy peripheral [Unknown]
  - Swollen tongue [Recovered/Resolved]
  - Dysarthria [Unknown]
  - Hypoaesthesia [Unknown]
  - Peripheral coldness [Unknown]
  - Peripheral coldness [Unknown]
  - Tinnitus [Recovered/Resolved]
  - Hypoaesthesia [Unknown]
  - Eye haemorrhage [Recovered/Resolved]
  - Tongue disorder [Recovered/Resolved]
